FAERS Safety Report 7096258-3 (Version None)
Quarter: 2010Q4

REPORT INFORMATION
  Report Type: 
  Country: None (occurrence: None)
  Receive Date: 20101103
  Receipt Date: 20101026
  Transmission Date: 20110411
  Serious: Yes (Death, Other)
  Sender: FDA-Public Use
  Company Number: 011219

PATIENT
  Age: 91 Year
  Sex: Female
  Weight: 42 kg

DRUGS (7)
  1. PLETAL [Suspect]
     Indication: CEREBRAL INFARCTION
     Dosage: 50 MG, BID, ORAL
     Route: 048
     Dates: end: 20101001
  2. PLETAL [Suspect]
     Indication: CEREBRAL INFARCTION
     Dosage: 50 MG, BID, ORAL
     Route: 048
     Dates: start: 20050204
  3. DIOVAN [Suspect]
     Indication: HYPERTENSION
     Dosage: 80 MG, QD, ORAL
     Route: 048
     Dates: start: 19981120, end: 20101001
  4. DEPAS (ETIZOLAM) [Concomitant]
  5. FAMOTIDINE [Concomitant]
  6. NORVASC OD (AMLODIPINE BESILATE) [Concomitant]
  7. ASPIRIN [Concomitant]

REACTIONS (4)
  - INTERSTITIAL LUNG DISEASE [None]
  - MOVEMENT DISORDER [None]
  - OEDEMA PERIPHERAL [None]
  - PULMONARY OEDEMA [None]
